FAERS Safety Report 6291697-2 (Version None)
Quarter: 2009Q3

REPORT INFORMATION
  Report Type: 
  Country: None (occurrence: None)
  Receive Date: 20090730
  Receipt Date: 20090721
  Transmission Date: 20100115
  Serious: Yes (Other)
  Sender: FDA-Public Use
  Company Number: US-ELI_LILLY_AND_COMPANY-US200906004771

PATIENT
  Sex: Female
  Weight: 47.619 kg

DRUGS (5)
  1. FORTEO [Suspect]
     Indication: OSTEOPOROSIS
     Dosage: 20 UG, DAILY (1/D)
     Dates: start: 20090101, end: 20090101
  2. FORTEO [Suspect]
     Dosage: 20 UG, DAILY (1/D)
     Dates: start: 20090101, end: 20090101
  3. CARBIDOPA-LEVODOPA [Concomitant]
  4. SERTRALINE [Concomitant]
  5. ASPIRIN [Concomitant]
     Dosage: 81 MG, UNK

REACTIONS (7)
  - ASTHENIA [None]
  - CHOKING [None]
  - DYSPNOEA [None]
  - EMOTIONAL DISTRESS [None]
  - LICHEN PLANUS [None]
  - MALAISE [None]
  - PHARYNGEAL DISORDER [None]
